FAERS Safety Report 9065766 (Version 1)
Quarter: 2013Q1

REPORT INFORMATION
  Report Type: Report from Study
  Country: US (occurrence: US)
  Receive Date: 20130131
  Receipt Date: 20130131
  Transmission Date: 20140127
  Serious: No
  Sender: FDA-Public Use
  Company Number: US-ABBOTT-12P-163-1023006-00

PATIENT
  Age: 59 Year
  Sex: Female

DRUGS (13)
  1. HUMIRA [Suspect]
     Indication: PSORIATIC ARTHROPATHY
  2. VITAMIN B12 [Concomitant]
     Indication: PRODUCT USED FOR UNKNOWN INDICATION
     Route: 058
  3. KLONOPIN [Concomitant]
     Indication: ANXIETY
  4. AMITRIPTYLINE [Concomitant]
     Indication: ANXIETY
  5. FLEXERIL [Concomitant]
     Indication: PAIN
     Dosage: 10 MG 1 TAB AT BEDTIME AS NEEDED
  6. LUNESTA [Concomitant]
     Indication: INSOMNIA
     Dosage: AT BEDTIME
  7. LASIX [Concomitant]
     Indication: HYPERTENSION
  8. ATENOLOL [Concomitant]
     Indication: HYPERTENSION
  9. HYDROCODONE WITH ACETAMINOPHEN [Concomitant]
     Indication: PAIN
     Dosage: 5/500 MG
  10. DICLOFENAC [Concomitant]
     Indication: INFLAMMATION
  11. ALBUTEROL [Concomitant]
     Indication: PRODUCT USED FOR UNKNOWN INDICATION
  12. UNKNOWN NEBULIZER [Concomitant]
     Indication: ASTHMA
  13. METHOTREXATE [Concomitant]
     Indication: PRODUCT USED FOR UNKNOWN INDICATION

REACTIONS (4)
  - Local swelling [Not Recovered/Not Resolved]
  - Rash [Not Recovered/Not Resolved]
  - Joint swelling [Not Recovered/Not Resolved]
  - Pain [Not Recovered/Not Resolved]
